FAERS Safety Report 19467000 (Version 2)
Quarter: 2021Q3

REPORT INFORMATION
  Report Type: Spontaneous
  Country: JP (occurrence: JP)
  Receive Date: 20210628
  Receipt Date: 20210719
  Transmission Date: 20211014
  Serious: Yes (Other)
  Sender: FDA-Public Use
  Company Number: JP-AMGEN-JPNSP2021097121

PATIENT

DRUGS (1)
  1. PRALIA [Suspect]
     Active Substance: DENOSUMAB
     Indication: OSTEOPOROSIS
     Dosage: UNK
     Route: 058
     Dates: end: 202008

REACTIONS (5)
  - Gastric polyps [Unknown]
  - Dizziness [Unknown]
  - Nephrogenic anaemia [Unknown]
  - Large intestine polyp [Unknown]
  - Glomerulonephritis chronic [Unknown]
